FAERS Safety Report 8921435 (Version 1)
Quarter: 2012Q4

REPORT INFORMATION
  Report Type: 
  Country: JP (occurrence: JP)
  Receive Date: 20121121
  Receipt Date: 20121121
  Transmission Date: 20130627
  Serious: Yes (Life-Threatening)
  Sender: FDA-Public Use
  Company Number: JP-ROCHE-940940074001

PATIENT
  Age: 17 Year
  Sex: Female
  Weight: 55 kg

DRUGS (7)
  1. ROCEPHIN [Suspect]
     Indication: INFLAMMATION
     Dosage: drug start date: 19/Aug/1994
     Route: 042
  2. ALBUMIN (HUMAN SERUM ALBUMIN) [Concomitant]
     Indication: OEDEMA
     Route: 042
  3. LASIX [Concomitant]
     Indication: OEDEMA
     Route: 042
  4. PREDNISOLONE [Concomitant]
     Indication: NEPHROTIC SYNDROME
     Route: 048
  5. MEVALOTIN [Concomitant]
     Indication: HYPERLIPIDAEMIA
     Route: 048
     Dates: start: 19940728, end: 19940816
  6. CALONAL [Concomitant]
     Indication: PYREXIA
     Route: 048
  7. JUVELA [Concomitant]
     Indication: PERIPHERAL CIRCULATORY FAILURE
     Route: 048

REACTIONS (1)
  - Renal failure acute [Recovered/Resolved]
